FAERS Safety Report 13967238 (Version 1)
Quarter: 2017Q3

REPORT INFORMATION
  Report Type: Spontaneous
  Country: US (occurrence: None)
  Receive Date: 20170914
  Receipt Date: 20170914
  Transmission Date: 20171128
  Serious: No
  Sender: FDA-Public Use
  Company Number: None

PATIENT
  Age: 52 Year
  Sex: Male

DRUGS (1)
  1. SUTENT [Suspect]
     Active Substance: SUNITINIB MALATE
     Indication: PRODUCT USED FOR UNKNOWN INDICATION
     Dosage: 50MG ONCE DAILY FOR 14 DAYS, 7 DAYS OFF ORALLY
     Route: 048
     Dates: start: 20170627, end: 20170826

REACTIONS (1)
  - Disease progression [None]

NARRATIVE: CASE EVENT DATE: 20170627
